FAERS Safety Report 21220131 (Version 2)
Quarter: 2022Q3

REPORT INFORMATION
  Report Type: Spontaneous
  Country: US (occurrence: US)
  Receive Date: 20220817
  Receipt Date: 20220830
  Transmission Date: 20221027
  Serious: Yes (Other)
  Sender: FDA-Public Use
  Company Number: US-NOVARTISTESTPH-NVSC2022US184299

PATIENT
  Age: 80 Year
  Sex: Male

DRUGS (2)
  1. CAPMATINIB [Suspect]
     Active Substance: CAPMATINIB
     Indication: Non-small cell lung cancer
     Dosage: 400 MG, BID
     Route: 048
  2. CAPMATINIB [Suspect]
     Active Substance: CAPMATINIB
     Dosage: 200 MG, BID
     Route: 048

REACTIONS (2)
  - Renal failure [Recovering/Resolving]
  - Blood creatinine increased [Recovering/Resolving]
